FAERS Safety Report 16685549 (Version 1)
Quarter: 2019Q3

REPORT INFORMATION
  Report Type: Spontaneous
  Country: US (occurrence: US)
  Receive Date: 20190809
  Receipt Date: 20190809
  Transmission Date: 20191004
  Serious: No
  Sender: FDA-Public Use
  Company Number: US-SA-2019SA209830

PATIENT
  Age: 71 Year
  Sex: Female

DRUGS (4)
  1. MULTI VITAMIN [ASCORBIC ACID;COLECALCIFEROL;NICOTINAMIDE;PANTHENOL;PYR [Concomitant]
     Dosage: UNK UNK, QD
  2. DUPIXENT [Suspect]
     Active Substance: DUPILUMAB
     Indication: DERMATITIS ATOPIC
     Dosage: 300 MG, QOW
     Route: 058
     Dates: start: 20181110
  3. BROMALINE [BROMPHENIRAMINE MALEATE;PHENYLEPHRINE HYDROCHLORIDE;PHENYLP [Concomitant]
  4. TRIAMCINOLON [TRIAMCINOLONE] [Concomitant]

REACTIONS (1)
  - Therapeutic response decreased [Unknown]

NARRATIVE: CASE EVENT DATE: 20190729
